APPROVED DRUG PRODUCT: PEDIAZOLE
Active Ingredient: ERYTHROMYCIN ETHYLSUCCINATE; SULFISOXAZOLE ACETYL
Strength: EQ 200MG BASE/5ML;EQ 600MG BASE/5ML **Federal Register determination that product was not discontinued or withdrawn for safety or effectiveness reasons**
Dosage Form/Route: GRANULE;ORAL
Application: N050529 | Product #001
Applicant: ROSS LABORATORIES DIV ABBOTT LABORATORIES INC
Approved: Approved Prior to Jan 1, 1982 | RLD: No | RS: No | Type: DISCN